FAERS Safety Report 19691357 (Version 1)
Quarter: 2021Q3

REPORT INFORMATION
  Report Type: Report from Study
  Country: US (occurrence: US)
  Receive Date: 20210812
  Receipt Date: 20210812
  Transmission Date: 20211014
  Serious: No
  Sender: FDA-Public Use
  Company Number: US-IPSEN BIOPHARMACEUTICALS, INC.-2021-19358

PATIENT
  Age: 58 Year
  Sex: Female

DRUGS (1)
  1. SOMATULINE DEPOT [Suspect]
     Active Substance: LANREOTIDE ACETATE
     Indication: NEUROENDOCRINE TUMOUR
     Dosage: 120 MG EVERY 28 DAYS (SITE: BUTTOCKS) (RECEIVED 6 INJECTIONS)
     Route: 058
     Dates: start: 20210325

REACTIONS (3)
  - Diarrhoea [Not Recovered/Not Resolved]
  - Injection site mass [Not Recovered/Not Resolved]
  - Wrong technique in product usage process [Unknown]

NARRATIVE: CASE EVENT DATE: 2021
